FAERS Safety Report 9737542 (Version 1)
Quarter: 2013Q4

REPORT INFORMATION
  Report Type: Spontaneous
  Country: US (occurrence: US)
  Receive Date: 20131207
  Receipt Date: 20131207
  Transmission Date: 20140711
  Serious: No
  Sender: FDA-Public Use
  Company Number: US-009507513-1311USA011683

PATIENT
  Sex: Male

DRUGS (2)
  1. TEMODAR [Suspect]
     Indication: BRAIN NEOPLASM
     Dosage: TWO 140 MG CAPSULES, MONTHLY, BY MOUTH AT NIGHT
     Route: 048
     Dates: start: 201309
  2. TEMODAR [Suspect]
     Indication: BRAIN NEOPLASM
     Dosage: SIX 5 MG CAPSULES MONTHLY, BY MOUTH AT NIGHT
     Route: 048
     Dates: start: 201309

REACTIONS (1)
  - Adverse event [Unknown]
